FAERS Safety Report 4302975-8 (Version None)
Quarter: 2004Q1

REPORT INFORMATION
  Report Type: 
  Country: None (occurrence: None)
  Receive Date: 20040224
  Receipt Date: 20040217
  Transmission Date: 20041129
  Serious: Yes (Hospitalization)
  Sender: FDA-Public Use
  Company Number: CA-GLAXOSMITHKLINE-A0498786A

PATIENT
  Sex: Female

DRUGS (2)
  1. PARNATE [Suspect]
     Indication: DRUG USE FOR UNKNOWN INDICATION
  2. LUDIOMIL [Concomitant]
     Indication: DRUG USE FOR UNKNOWN INDICATION

REACTIONS (3)
  - BRUXISM [None]
  - JAW DISORDER [None]
  - PARKINSONISM [None]
